FAERS Safety Report 6446850-1 (Version None)
Quarter: 2009Q4

REPORT INFORMATION
  Report Type: 
  Country: None (occurrence: None)
  Receive Date: 20091119
  Receipt Date: 20091111
  Transmission Date: 20100525
  Serious: Yes (Death)
  Sender: FDA-Public Use
  Company Number: GB-JNJFOC-20091005534

PATIENT
  Age: 75 Year
  Sex: Male
  Weight: 97 kg

DRUGS (8)
  1. REMICADE [Suspect]
     Indication: RHEUMATOID ARTHRITIS
     Route: 042
     Dates: start: 20060719, end: 20090702
  2. PENICILLAMINE [Concomitant]
  3. PREDNISOLONE [Concomitant]
  4. BENDROFLUAZIDE [Concomitant]
  5. DOXAZOSIN [Concomitant]
  6. LANSOPRAZOLE [Concomitant]
  7. METHOTREXATE [Concomitant]
  8. HYDROXYCHLOROQUINE SULFATE [Concomitant]

REACTIONS (1)
  - PULMONARY FIBROSIS [None]
